FAERS Safety Report 11936836 (Version 2)
Quarter: 2016Q1

REPORT INFORMATION
  Report Type: Report from Study
  Country: NL (occurrence: NL)
  Receive Date: 20160121
  Receipt Date: 20160310
  Transmission Date: 20160526
  Serious: Yes (Death, Hospitalization, Other)
  Sender: FDA-Public Use
  Company Number: NL-CELGENE-NLD-2015123731

PATIENT
  Age: 66 Year
  Sex: Male

DRUGS (2)
  1. REVLIMID [Suspect]
     Active Substance: LENALIDOMIDE
     Indication: OFF LABEL USE
  2. REVLIMID [Suspect]
     Active Substance: LENALIDOMIDE
     Indication: MYELOFIBROSIS
     Dosage: 5 MILLIGRAM
     Route: 048
     Dates: start: 20150720, end: 20151130

REACTIONS (4)
  - Thrombocytopenia [Fatal]
  - Shock haemorrhagic [Fatal]
  - Cardiogenic shock [Fatal]
  - Myelofibrosis [Fatal]

NARRATIVE: CASE EVENT DATE: 20151203
